FAERS Safety Report 9690797 (Version 2)
Quarter: 2013Q4

REPORT INFORMATION
  Report Type: Spontaneous
  Country: BR (occurrence: BR)
  Receive Date: 20131115
  Receipt Date: 20131122
  Transmission Date: 20140711
  Serious: Yes (Hospitalization)
  Sender: FDA-Public Use
  Company Number: BR-PFIZER INC-2013324721

PATIENT
  Age: 65 Year
  Sex: Female
  Weight: 53 kg

DRUGS (3)
  1. AROMASIN [Suspect]
     Indication: BREAST CANCER
     Dosage: 25 MG, 1X/DAY
     Route: 048
     Dates: start: 20130724
  2. ZOMETA [Concomitant]
     Dosage: 4 MG, EVERY 28 DAYS
     Route: 042
     Dates: start: 20110812
  3. AFINITOR [Concomitant]
     Dosage: 10 MG, 1X/DAY
     Route: 048
     Dates: start: 20130724

REACTIONS (1)
  - Febrile neutropenia [Recovered/Resolved]
